FAERS Safety Report 5599449-3 (Version None)
Quarter: 2008Q1

REPORT INFORMATION
  Report Type: 
  Country: None (occurrence: None)
  Receive Date: 20080123
  Receipt Date: 20080110
  Transmission Date: 20080703
  Serious: Yes (Other)
  Sender: FDA-Public Use
  Company Number: US-PFIZER INC-2008004608

PATIENT
  Sex: Female
  Weight: 46.7 kg

DRUGS (1)
  1. CHANTIX [Suspect]

REACTIONS (6)
  - ABDOMINAL DISTENSION [None]
  - ABNORMAL DREAMS [None]
  - CONSTIPATION [None]
  - PALPITATIONS [None]
  - VISUAL ACUITY REDUCED [None]
  - WRONG TECHNIQUE IN DRUG USAGE PROCESS [None]
